FAERS Safety Report 9936942 (Version 1)
Quarter: 2014Q1

REPORT INFORMATION
  Report Type: Spontaneous
  Country: US (occurrence: None)
  Receive Date: 20140115
  Receipt Date: 20140115
  Transmission Date: 20141002
  Serious: No
  Sender: FDA-Public Use
  Company Number: 2013US002735

PATIENT
  Age: 65 Year
  Sex: Female
  Weight: 57 kg

DRUGS (1)
  1. ICLUSIG [Suspect]
     Indication: CHRONIC MYELOID LEUKAEMIA
     Route: 048
     Dates: start: 20131011, end: 20131027

REACTIONS (11)
  - Vaginal haemorrhage [None]
  - Skin exfoliation [None]
  - Hyperhidrosis [None]
  - Vaginal discharge [None]
  - Pruritus [None]
  - Weight decreased [None]
  - Rash generalised [None]
  - Pyrexia [None]
  - Chills [None]
  - Headache [None]
  - Oedema peripheral [None]
